FAERS Safety Report 8185068-1 (Version None)
Quarter: 2012Q1

REPORT INFORMATION
  Report Type: 
  Country: None (occurrence: None)
  Receive Date: 20120305
  Receipt Date: 20120229
  Transmission Date: 20120608
  Serious: Yes (Hospitalization)
  Sender: FDA-Public Use
  Company Number: FR-PFIZER INC-2012053131

PATIENT
  Age: 57 Year
  Sex: Female

DRUGS (4)
  1. DURAGESIC-100 [Suspect]
     Dosage: UNK
     Route: 062
     Dates: end: 20111230
  2. OXYCODONE HCL [Suspect]
     Dosage: UNK
     Dates: end: 20111230
  3. ZOLPIDEM [Suspect]
     Dosage: UNK
     Dates: end: 20111230
  4. NEURONTIN [Suspect]
     Dosage: UNK
     Route: 048
     Dates: end: 20111230

REACTIONS (3)
  - PULMONARY EMBOLISM [None]
  - PNEUMONIA ASPIRATION [None]
  - COMA [None]
